FAERS Safety Report 22620875 (Version 2)
Quarter: 2023Q2

REPORT INFORMATION
  Report Type: Spontaneous
  Country: US (occurrence: US)
  Receive Date: 20230620
  Receipt Date: 20230629
  Transmission Date: 20230721
  Serious: No
  Sender: FDA-Public Use
  Company Number: US-LUPIN PHARMACEUTICALS INC.-2023-04726

PATIENT

DRUGS (1)
  1. GAVILYTE G [Suspect]
     Active Substance: POLYETHYLENE GLYCOL 3350\POTASSIUM CHLORIDE\SODIUM BICARBONATE\SODIUM CHLORIDE\SODIUM SULFATE
     Indication: Caecostomy
     Dosage: UNK UNK, QD DIRECTLY INTO HIS COLON VIA C TUBE, 400 ML
     Route: 065

REACTIONS (2)
  - Incorrect route of product administration [Unknown]
  - Off label use [Unknown]
